FAERS Safety Report 7518568-5 (Version None)
Quarter: 2011Q2

REPORT INFORMATION
  Report Type: 
  Country: None (occurrence: None)
  Receive Date: 20110601
  Receipt Date: 20110601
  Transmission Date: 20111010
  Serious: No
  Sender: FDA-Public Use
  Company Number: None

PATIENT
  Age: 14 Year
  Sex: Male
  Weight: 68.0396 kg

DRUGS (1)
  1. KENALOG [Suspect]

REACTIONS (3)
  - VOMITING [None]
  - SYNCOPE [None]
  - INJECTION SITE INDURATION [None]
